FAERS Safety Report 26079905 (Version 1)
Quarter: 2025Q4

REPORT INFORMATION
  Report Type: Spontaneous
  Country: GB (occurrence: GB)
  Receive Date: 20251123
  Receipt Date: 20251123
  Transmission Date: 20260117
  Serious: Yes (Hospitalization, Other)
  Sender: SUZHOU LIXIN PHARMACEUTICAL
  Company Number: GB-LEXENPHARMA (SUZHOU) LIMITED-2025LEX000006

PATIENT
  Age: 56 Year
  Sex: Female

DRUGS (6)
  1. ALBUTEROL [Suspect]
     Active Substance: ALBUTEROL
     Indication: Asthma
     Dosage: 2.5 MILLIGRAM
  2. IPRATROPIUM [Concomitant]
     Active Substance: IPRATROPIUM
     Indication: Asthma
     Dosage: 500 MICROGRAM EVERY 20 TO 30 MINS OVER THE FIRST 2 TO 3 HOURS
     Route: 065
  3. DOXYCYCLINE [Concomitant]
     Active Substance: DOXYCYCLINE
     Indication: Product used for unknown indication
     Dosage: UNK
     Route: 065
  4. MAGNESIUM SULFATE [Concomitant]
     Active Substance: MAGNESIUM SULFATE
     Indication: Product used for unknown indication
     Dosage: UNK
     Route: 042
  5. PREDNISOLONE [Concomitant]
     Active Substance: PREDNISOLONE
     Indication: Product used for unknown indication
     Dosage: 40 MILLIGRAM, DAILY
     Route: 048
  6. LEVOFLOXACIN [Concomitant]
     Active Substance: LEVOFLOXACIN
     Indication: Drug hypersensitivity
     Dosage: 500 MILLIGRAM, BID
     Route: 065

REACTIONS (2)
  - Lactic acidosis [Recovered/Resolved]
  - Product use issue [Unknown]
